FAERS Safety Report 13587800 (Version 2)
Quarter: 2017Q3

REPORT INFORMATION
  Report Type: Spontaneous
  Country: US (occurrence: US)
  Receive Date: 20170527
  Receipt Date: 20170712
  Transmission Date: 20171127
  Serious: No
  Sender: FDA-Public Use
  Company Number: US-CELGENEUS-USA-20170505376

PATIENT
  Age: 54 Year
  Sex: Male
  Weight: 134.38 kg

DRUGS (1)
  1. OTEZLA [Suspect]
     Active Substance: APREMILAST
     Indication: PSORIASIS
     Dosage: 60 MILLIGRAM
     Route: 048
     Dates: start: 20170418

REACTIONS (2)
  - Headache [Recovered/Resolved]
  - Diarrhoea [Unknown]

NARRATIVE: CASE EVENT DATE: 20170420
